FAERS Safety Report 8068721-X (Version None)
Quarter: 2012Q1

REPORT INFORMATION
  Report Type: 
  Country: None (occurrence: None)
  Receive Date: 20120124
  Receipt Date: 20111122
  Transmission Date: 20120608
  Serious: No
  Sender: FDA-Public Use
  Company Number: US-AMGEN-USASP2011061936

PATIENT
  Sex: Female

DRUGS (2)
  1. LOVASTATIN [Concomitant]
  2. PROLIA [Suspect]
     Indication: OSTEOPOROSIS POSTMENOPAUSAL
     Dosage: UNK
     Dates: start: 20110101

REACTIONS (8)
  - BODY HEIGHT DECREASED [None]
  - RESPIRATORY TRACT CONGESTION [None]
  - DIARRHOEA [None]
  - INFLUENZA [None]
  - SINUSITIS [None]
  - BONE DENSITY DECREASED [None]
  - ARTHRALGIA [None]
  - ERYTHEMA [None]
